FAERS Safety Report 21370250 (Version 1)
Quarter: 2022Q3

REPORT INFORMATION
  Report Type: Spontaneous
  Country: DE (occurrence: DE)
  Receive Date: 20220923
  Receipt Date: 20220923
  Transmission Date: 20221027
  Serious: Yes (Hospitalization, Other)
  Sender: FDA-Public Use
  Company Number: DE-ADRED-06518-02

PATIENT
  Age: 74 Year
  Sex: Male
  Weight: 92 kg

DRUGS (18)
  1. FEBUXOSTAT [Suspect]
     Active Substance: FEBUXOSTAT
     Indication: Product used for unknown indication
     Dosage: 80 MG, 1-0-0-0, TABLETTEN
     Route: 048
  2. TORSEMIDE [Suspect]
     Active Substance: TORSEMIDE
     Indication: Product used for unknown indication
     Dosage: 50 MG, 1-0-0-0, TABLETTEN (50 MG, 1-0-0-0, TABLETS)
     Route: 048
  3. METFORMIN [Suspect]
     Active Substance: METFORMIN HYDROCHLORIDE
     Indication: Product used for unknown indication
     Dosage: 500 MG, 0-0-1-0, TABLETTEN (500 MG, 0-0-1-0, TABLETS)
     Route: 048
  4. APIXABAN [Suspect]
     Active Substance: APIXABAN
     Indication: Product used for unknown indication
     Dosage: 5 MG, 1-0-1-0, TABLETTEN
     Route: 048
  5. CLOPIDOGREL [Suspect]
     Active Substance: CLOPIDOGREL BISULFATE
     Indication: Product used for unknown indication
     Dosage: 75 MG, 1-0-0-0, TABLETTEN (75 MG, 1-0-0-0, TABLETS)
     Route: 048
  6. CANDESARTAN [Suspect]
     Active Substance: CANDESARTAN
     Indication: Product used for unknown indication
     Dosage: 8 MG, 0-0-1-0, TABLETTEN (8 MG, 0-0-1-0, TABLETS)
     Route: 048
  7. LEVOTHYROXINE SODIUM [Concomitant]
     Active Substance: LEVOTHYROXINE SODIUM
     Indication: Product used for unknown indication
     Dosage: 150 ?G, 1-0-0-0, TABLETTEN (150 ?G, 1-0-0-0, TABLETS)
     Route: 048
  8. BISOPROLOL [Concomitant]
     Active Substance: BISOPROLOL
     Indication: Product used for unknown indication
     Dosage: 5 MG, 0.5-0-0.5-0, TABLETTEN (5 MG, 0.5-0-0.5-0, TABLETS)
     Route: 048
  9. TAMSULOSIN [Concomitant]
     Active Substance: TAMSULOSIN
     Indication: Product used for unknown indication
     Dosage: 0.4 MG, 0-1-0-0, RETARD-KAPSELN (0.4 MG, 0-1-0-0, SUSTAINED-RELEASE CAPSULES)
     Route: 048
  10. PANTOPRAZOLE [Concomitant]
     Active Substance: PANTOPRAZOLE
     Indication: Product used for unknown indication
     Dosage: 40 MG, 1-0-0-0, TABLETTEN (40 MG, 1-0-0-0, TABLETTEN)
     Route: 048
  11. METAMIZOL [Concomitant]
     Active Substance: METAMIZOLE SODIUM
     Indication: Product used for unknown indication
     Dosage: 500 MG, 1-1-1-1, TABLETTEN (500 MG, 1-1-1-1, TABLETS)
     Route: 048
  12. LIRAGLUTIDE [Concomitant]
     Active Substance: LIRAGLUTIDE
     Indication: Product used for unknown indication
     Dosage: 6 MG/ML, NK, FERTIGSPRITZEN (6 MG/ML, NK, PREFILLED SYRINGES)
  13. MAGNESIUM [Concomitant]
     Active Substance: MAGNESIUM
     Indication: Product used for unknown indication
     Dosage: 243 MG, 0-0-1-0, BRAUSETABLETTEN (243 MG, 0-0-1-0, EFFERVESCENT TABLETS)
     Route: 048
  14. ZOPICLONE [Concomitant]
     Active Substance: ZOPICLONE
     Indication: Product used for unknown indication
     Dosage: 7.5 MG, 0-0-1-0, TABLETTEN
     Route: 048
  15. Spiriva 18Mikrogramm + Handihaler [Concomitant]
     Indication: Product used for unknown indication
     Dosage: 18 ?G, 1-0-0-0, KAPSELN (18 ?G, 1-0-0-0, CAPSULES)
  16. BUDESONIDE [Concomitant]
     Active Substance: BUDESONIDE
     Indication: Product used for unknown indication
     Dosage: 200 ?G, 1-0-1-0, HARTKAPSEL MIT PULVER ZUR INHALATION (200 ?G, 1-0-1-0, HARD CAPSULE WITH POWDER FOR
  17. ALBUTEROL [Concomitant]
     Active Substance: ALBUTEROL
     Indication: Product used for unknown indication
     Dosage: 1.25 MG/2.5ML, 1-0-0-0, AMPULLEN (1.25 MG/2.5ML, 1-0-0-0, AMPOULES)
  18. FORMOTEROL [Concomitant]
     Active Substance: FORMOTEROL
     Indication: Product used for unknown indication
     Dosage: 12 ?G, 1-0-1-0, HARTKAPSEL MIT PULVER ZUR INHALATION

REACTIONS (6)
  - Anaemia [Unknown]
  - Lower gastrointestinal haemorrhage [Unknown]
  - Acute kidney injury [Unknown]
  - Haematochezia [Unknown]
  - Respiratory tract haemorrhage [Unknown]
  - Hypokalaemia [Unknown]
